FAERS Safety Report 12634677 (Version 1)
Quarter: 2016Q3

REPORT INFORMATION
  Report Type: Spontaneous
  Country: AU (occurrence: AU)
  Receive Date: 20160809
  Receipt Date: 20160809
  Transmission Date: 20161109
  Serious: Yes (Other)
  Sender: FDA-Public Use
  Company Number: AU-PFIZER INC-2016378289

PATIENT
  Sex: Male

DRUGS (6)
  1. SOLPRIN [Concomitant]
     Active Substance: ASPIRIN
  2. IMDUR [Suspect]
     Active Substance: ISOSORBIDE MONONITRATE
     Route: 048
  3. ANGININE [Concomitant]
  4. TENORMIN [Suspect]
     Active Substance: ATENOLOL
     Route: 065
  5. PROGOUT [Suspect]
     Active Substance: ALLOPURINOL
     Route: 065
  6. COLGOUT [Suspect]
     Active Substance: COLCHICINE
     Route: 065

REACTIONS (8)
  - Renal impairment [Unknown]
  - Chills [Unknown]
  - Lichenoid keratosis [Unknown]
  - Hypotension [Unknown]
  - Dizziness [Unknown]
  - Acute kidney injury [Unknown]
  - Pruritus [Unknown]
  - Rash [Unknown]
